FAERS Safety Report 8132876-9 (Version None)
Quarter: 2012Q1

REPORT INFORMATION
  Report Type: 
  Country: None (occurrence: None)
  Receive Date: 20120103
  Receipt Date: 20111003
  Transmission Date: 20120608
  Serious: No
  Sender: FDA-Public Use
  Company Number: AE-2011-001775

PATIENT
  Age: 57 Year
  Sex: Female

DRUGS (7)
  1. PEGINTERFERON (PEGINTERFERON ALFA-2A) [Concomitant]
  2. ASPIRIN [Concomitant]
  3. CITALOPRAM HYDROBROMIDE [Concomitant]
  4. INCIVEK [Suspect]
     Dosage: 2250 MG (750 MG,3 IN 1 D),ORAL
     Route: 048
     Dates: start: 20110909, end: 20110926
  5. RIBAVIRIN [Concomitant]
  6. LOTREL [Concomitant]
  7. LORTAB [Concomitant]

REACTIONS (4)
  - MOUTH ULCERATION [None]
  - ODYNOPHAGIA [None]
  - OROPHARYNGEAL BLISTERING [None]
  - PHARYNGEAL ULCERATION [None]
